FAERS Safety Report 26034292 (Version 1)
Quarter: 2025Q4

REPORT INFORMATION
  Report Type: Spontaneous
  Country: US (occurrence: None)
  Receive Date: 20251111
  Receipt Date: 20251111
  Transmission Date: 20260117
  Serious: Yes (Hospitalization)
  Sender: FDA-CTU
  Company Number: None

PATIENT
  Age: 69 Year
  Sex: Male

DRUGS (11)
  1. POMALYST [Suspect]
     Active Substance: POMALIDOMIDE
     Indication: Plasma cell myeloma
     Dosage: TAKE 1 CAPSULE (2 MG TOTAL) BY MOUTH DAILY ON DAYS 1-21, FOLLOWED BY 7 DAYS OFF
     Route: 048
     Dates: start: 20241011
  2. ACYCLOVIR [Concomitant]
     Active Substance: ACYCLOVIR
  3. AMLODIPINE [Concomitant]
     Active Substance: AMLODIPINE BESYLATE
  4. AMLODIPINE TAB5MG [Concomitant]
  5. ASPIRIN [Concomitant]
     Active Substance: ASPIRIN
  6. CLOBETASOL PROPIONATE [Concomitant]
     Active Substance: CLOBETASOL PROPIONATE
  7. HYDROXYZ HCL TAB 10MG [Concomitant]
  8. LORATADINE TAB 10MG [Concomitant]
  9. OXYCODONE [Concomitant]
     Active Substance: OXYCODONE
  10. OYSTER SHELL TAB 500MG [Concomitant]
  11. PERCOCET TAB 5-325MG [Concomitant]

REACTIONS (1)
  - Hospitalisation [None]

NARRATIVE: CASE EVENT DATE: 20251110
